FAERS Safety Report 8413527-2 (Version None)
Quarter: 2012Q2

REPORT INFORMATION
  Report Type: 
  Country: None (occurrence: None)
  Receive Date: 20120605
  Receipt Date: 20120530
  Transmission Date: 20120825
  Serious: Yes (Congenital Anomaly)
  Sender: FDA-Public Use
  Company Number: US-GLAXOSMITHKLINE-A0979886A

PATIENT
  Sex: Male

DRUGS (7)
  1. IMURAN [Concomitant]
  2. TEGRETOL [Concomitant]
  3. PREDNISONE [Concomitant]
  4. SYNTHROID [Concomitant]
  5. ATIVAN [Concomitant]
  6. PAXIL [Suspect]
     Indication: PRODUCT USED FOR UNKNOWN INDICATION
     Route: 064
  7. DEPAKOTE [Concomitant]

REACTIONS (3)
  - PULMONARY VALVE STENOSIS [None]
  - CARDIAC MURMUR [None]
  - FOETAL EXPOSURE DURING PREGNANCY [None]
